FAERS Safety Report 11418465 (Version 1)
Quarter: 2015Q3

REPORT INFORMATION
  Report Type: Spontaneous
  Country: US (occurrence: US)
  Receive Date: 20150826
  Receipt Date: 20150826
  Transmission Date: 20151125
  Serious: No
  Sender: FDA-Public Use
  Company Number: US-NOVEN PHARMACEUTICALS, INC.-US2015000512

PATIENT
  Age: 68 Year
  Sex: Female

DRUGS (3)
  1. MINIVELLE [Suspect]
     Active Substance: ESTRADIOL
     Indication: NIGHT SWEATS
     Dosage: 0.0375 MG, UNKNOWN
     Route: 062
     Dates: start: 2014
  2. MINIVELLE [Suspect]
     Active Substance: ESTRADIOL
     Indication: HOT FLUSH
  3. PROMETRIUM [Concomitant]
     Active Substance: PROGESTERONE
     Indication: BLOOD OESTROGEN ABNORMAL
     Dosage: 100 MG, UNK

REACTIONS (2)
  - Drug effect decreased [Unknown]
  - Product quality issue [Unknown]
